FAERS Safety Report 9257915 (Version 2)
Quarter: 2013Q2

REPORT INFORMATION
  Report Type: Spontaneous
  Country: DE (occurrence: DE)
  Receive Date: 20130426
  Receipt Date: 20130520
  Transmission Date: 20140414
  Serious: Yes (Other)
  Sender: FDA-Public Use
  Company Number: DE-BRISTOL-MYERS SQUIBB COMPANY-18803304

PATIENT
  Age: 37 Year
  Sex: Female

DRUGS (2)
  1. ABILIFY [Suspect]
     Dosage: 10MG DAILY DOSE
     Route: 065
  2. CLOZAPINE [Interacting]
     Dosage: END OF LAST WEEK
     Route: 065

REACTIONS (2)
  - Delusion [Unknown]
  - Drug interaction [Unknown]
